FAERS Safety Report 8100810-3 (Version None)
Quarter: 2012Q1

REPORT INFORMATION
  Report Type: 
  Country: None (occurrence: None)
  Receive Date: 20120129
  Receipt Date: 20111012
  Transmission Date: 20120608
  Serious: No
  Sender: FDA-Public Use
  Company Number: US-ABBOTT-11P-163-0864407-00

PATIENT
  Age: 15 Year
  Sex: Female
  Weight: 43.584 kg

DRUGS (1)
  1. HUMIRA [Suspect]
     Indication: BEHCET'S SYNDROME
     Dates: start: 20080101

REACTIONS (3)
  - BEHCET'S SYNDROME [None]
  - DIZZINESS [None]
  - HICCUPS [None]
